FAERS Safety Report 19204116 (Version 1)
Quarter: 2021Q2

REPORT INFORMATION
  Report Type: Spontaneous
  Country: GB (occurrence: GB)
  Receive Date: 20210503
  Receipt Date: 20210503
  Transmission Date: 20210717
  Serious: Yes (Hospitalization, Other)
  Sender: FDA-Public Use
  Company Number: GB-ADVANZ PHARMA-202104003053

PATIENT

DRUGS (9)
  1. PREDNISOLONE. [Suspect]
     Active Substance: PREDNISOLONE
     Dosage: 1 MG/KG  (70MG)
     Dates: start: 20210320
  2. PREDNISOLONE. [Suspect]
     Active Substance: PREDNISOLONE
     Dosage: 50 MG, QD
  3. DASATINIB. [Suspect]
     Active Substance: DASATINIB
     Dosage: UNK
     Dates: start: 202001, end: 202010
  4. BOSUTINIB [Concomitant]
     Active Substance: BOSUTINIB
     Indication: CHRONIC MYELOID LEUKAEMIA
     Dosage: UNK
     Dates: start: 20210202, end: 20210216
  5. SARS?COV?2 VIRUS [Suspect]
     Active Substance: SARS-COV-2
     Dosage: UNK
  6. ASTRAZENECA COVID?19 VACCINE [Suspect]
     Active Substance: AZD-1222
     Dosage: 1 DOSE
     Dates: start: 20210204
  7. ROMIPLOSTIM [Concomitant]
     Active Substance: ROMIPLOSTIM
  8. NILOTINIB [Suspect]
     Active Substance: NILOTINIB
     Dosage: UNK
     Dates: start: 20201026, end: 202101
  9. BOSUTINIB [Concomitant]
     Active Substance: BOSUTINIB
     Dosage: UNK
     Dates: start: 20210331

REACTIONS (6)
  - Conjunctival haemorrhage [Recovered/Resolved]
  - Neutropenia [Recovered/Resolved]
  - Petechiae [Unknown]
  - Blood blister [Unknown]
  - Immune thrombocytopenia [Not Recovered/Not Resolved]
  - Thrombocytopenia [Unknown]

NARRATIVE: CASE EVENT DATE: 20210217
